FAERS Safety Report 7334036-8 (Version None)
Quarter: 2011Q1

REPORT INFORMATION
  Report Type: 
  Country: None (occurrence: None)
  Receive Date: 20110307
  Receipt Date: 20110221
  Transmission Date: 20110831
  Serious: Yes (Other)
  Sender: FDA-Public Use
  Company Number: JP-CELGENEUS-087-21880-11022419

PATIENT
  Sex: Male

DRUGS (2)
  1. REVLIMID [Suspect]
     Indication: MULTIPLE MYELOMA
     Route: 048
  2. LENADEX [Concomitant]
     Indication: MULTIPLE MYELOMA
     Route: 048

REACTIONS (2)
  - DIPLEGIA [None]
  - LIVER FUNCTION TEST ABNORMAL [None]
